FAERS Safety Report 9508955 (Version 1)
Quarter: 2013Q3

REPORT INFORMATION
  Report Type: Spontaneous
  Country: US (occurrence: US)
  Receive Date: 20130909
  Receipt Date: 20130909
  Transmission Date: 20140515
  Serious: No
  Sender: FDA-Public Use
  Company Number: US-BRISTOL-MYERS SQUIBB COMPANY-19069723

PATIENT
  Age: 61 Year
  Sex: Female
  Weight: 78.46 kg

DRUGS (4)
  1. ABILIFY [Suspect]
     Indication: SCHIZOPHRENIA
  2. PAXIL [Concomitant]
     Dosage: ALSO TAKES 10 MG QOD, BOTH AT NIGHT
  3. KLONOPIN [Concomitant]
  4. DIOVAN [Concomitant]
     Indication: HYPERTENSION

REACTIONS (1)
  - Weight increased [Unknown]
